FAERS Safety Report 15460551 (Version 1)
Quarter: 2018Q4

REPORT INFORMATION
  Report Type: Spontaneous
  Country: IT (occurrence: IT)
  Receive Date: 20181003
  Receipt Date: 20181003
  Transmission Date: 20190204
  Serious: Yes (Hospitalization)
  Sender: FDA-Public Use
  Company Number: IT-TEVA-2018-IT-960713

PATIENT
  Age: 77 Year
  Sex: Female

DRUGS (6)
  1. NORVASC [Concomitant]
     Active Substance: AMLODIPINE BESYLATE
     Route: 065
  2. PAROXETINE. [Concomitant]
     Active Substance: PAROXETINE
     Route: 065
  3. DONEPEZIL. [Concomitant]
     Active Substance: DONEPEZIL
     Route: 065
  4. PANTORC 20 MG COMPRESSE GASTRORESISTENTI [Concomitant]
     Active Substance: PANTOPRAZOLE SODIUM
     Route: 065
  5. LASIX [Concomitant]
     Active Substance: FUROSEMIDE
     Route: 065
  6. REPAGLINIDE. [Suspect]
     Active Substance: REPAGLINIDE
     Indication: DIABETES MELLITUS
     Dosage: 1.5 MILLIGRAM DAILY;
     Route: 048
     Dates: start: 20180101, end: 20180619

REACTIONS (4)
  - Hypoglycaemia [Not Recovered/Not Resolved]
  - Confusional state [Not Recovered/Not Resolved]
  - Dysarthria [Not Recovered/Not Resolved]
  - Asthenia [Not Recovered/Not Resolved]

NARRATIVE: CASE EVENT DATE: 20180619
